FAERS Safety Report 13926531 (Version 2)
Quarter: 2018Q1

REPORT INFORMATION
  Report Type: Spontaneous
  Country: US (occurrence: US)
  Receive Date: 20170831
  Receipt Date: 20180129
  Transmission Date: 20180508
  Serious: Yes (Hospitalization, Other)
  Sender: FDA-Public Use
  Company Number: US-DSJP-DSU-2017-133122

PATIENT

DRUGS (1)
  1. AZOR [Suspect]
     Active Substance: AMLODIPINE BESYLATE\OLMESARTAN MEDOXOMIL
     Indication: PRODUCT USED FOR UNKNOWN INDICATION
     Dosage: 10/40MG, QD
     Route: 048
     Dates: start: 20100125, end: 20151208

REACTIONS (5)
  - Weight decreased [Unknown]
  - Gastroenteritis [Not Recovered/Not Resolved]
  - Infectious colitis [Not Recovered/Not Resolved]
  - Renal impairment [Unknown]
  - Syncope [Unknown]

NARRATIVE: CASE EVENT DATE: 20100316
